FAERS Safety Report 17588854 (Version 1)
Quarter: 2020Q1

REPORT INFORMATION
  Report Type: Spontaneous
  Country: GB (occurrence: GB)
  Receive Date: 20200327
  Receipt Date: 20200327
  Transmission Date: 20200409
  Serious: Yes (Death, Other)
  Sender: FDA-Public Use
  Company Number: GB-ROCHE-1923103

PATIENT
  Age: 66 Year
  Sex: Female

DRUGS (21)
  1. VINORELBINE [Concomitant]
     Active Substance: VINORELBINE TARTRATE
     Dosage: 5 CYCLES
     Route: 065
     Dates: start: 200704, end: 200707
  2. VINORELBINE [Concomitant]
     Active Substance: VINORELBINE TARTRATE
     Route: 048
     Dates: start: 201407
  3. CYCLOPHOSPHAMIDE. [Concomitant]
     Active Substance: CYCLOPHOSPHAMIDE
     Route: 065
     Dates: start: 201412
  4. TRASTUZUMAB. [Suspect]
     Active Substance: TRASTUZUMAB
     Indication: HER-2 POSITIVE BREAST CANCER
     Route: 065
     Dates: start: 200411, end: 200504
  5. TAXOTERE [Concomitant]
     Active Substance: DOCETAXEL
     Dosage: 6 CYCLES
     Route: 065
     Dates: start: 200411, end: 200504
  6. PACLITAXEL. [Concomitant]
     Active Substance: PACLITAXEL
     Route: 065
     Dates: start: 200803, end: 200806
  7. CARBOPLATIN. [Concomitant]
     Active Substance: CARBOPLATIN
     Route: 065
     Dates: start: 20091009
  8. TRASTUZUMAB. [Suspect]
     Active Substance: TRASTUZUMAB
     Route: 065
     Dates: start: 200708
  9. TAXOTERE [Concomitant]
     Active Substance: DOCETAXEL
     Route: 065
     Dates: start: 201004
  10. CYCLOPHOSPHAMIDE. [Concomitant]
     Active Substance: CYCLOPHOSPHAMIDE
     Route: 065
     Dates: start: 200405, end: 200410
  11. METHOTREXATE. [Concomitant]
     Active Substance: METHOTREXATE
     Route: 065
     Dates: start: 201412
  12. EPIRUBICIN [Concomitant]
     Active Substance: EPIRUBICIN
     Route: 065
     Dates: start: 200405, end: 200410
  13. CARBOPLATIN. [Concomitant]
     Active Substance: CARBOPLATIN
     Route: 065
     Dates: start: 201605, end: 201611
  14. TRASTUZUMAB EMTANSINE [Suspect]
     Active Substance: ADO-TRASTUZUMAB EMTANSINE
     Indication: HER-2 POSITIVE BREAST CANCER
     Route: 065
     Dates: start: 201507
  15. TRASTUZUMAB. [Suspect]
     Active Substance: TRASTUZUMAB
     Route: 065
     Dates: start: 201303, end: 201611
  16. VINORELBINE [Concomitant]
     Active Substance: VINORELBINE TARTRATE
     Route: 065
     Dates: start: 201104
  17. ETOPOSIDE. [Concomitant]
     Active Substance: ETOPOSIDE
  18. CAPECITABINE. [Suspect]
     Active Substance: CAPECITABINE
     Indication: HER-2 POSITIVE BREAST CANCER
     Route: 048
     Dates: start: 200512
  19. LAPATINIB [Concomitant]
     Active Substance: LAPATINIB
  20. PACLITAXEL. [Concomitant]
     Active Substance: PACLITAXEL
     Route: 065
     Dates: start: 200903, end: 20090609
  21. GEMCITABINE. [Concomitant]
     Active Substance: GEMCITABINE
     Route: 065
     Dates: start: 201303, end: 201311

REACTIONS (15)
  - Rash [Unknown]
  - Diarrhoea [Unknown]
  - Liver function test abnormal [Unknown]
  - Renal failure [Unknown]
  - Death [Fatal]
  - Lymphangitis [Unknown]
  - Metastatic neoplasm [Unknown]
  - Atrial flutter [Unknown]
  - Dementia [Unknown]
  - Neutropenic infection [Unknown]
  - Device related infection [Unknown]
  - Urinary tract infection [Unknown]
  - Metastases to lung [Unknown]
  - Ejection fraction decreased [Unknown]
  - Lower respiratory tract infection [Unknown]

NARRATIVE: CASE EVENT DATE: 200511
